FAERS Safety Report 10046904 (Version 2)
Quarter: 2014Q2

REPORT INFORMATION
  Report Type: Spontaneous
  Country: US (occurrence: US)
  Receive Date: 20140331
  Receipt Date: 20140522
  Transmission Date: 20141212
  Serious: Yes (Hospitalization, Other)
  Sender: FDA-Public Use
  Company Number: US-BAYER-2014-048086

PATIENT
  Age: 46 Year
  Sex: Female
  Weight: 74.83 kg

DRUGS (14)
  1. YAZ [Suspect]
     Dosage: UNK
     Dates: start: 20060130, end: 20071107
  2. YASMIN [Suspect]
     Dosage: UNK
     Dates: start: 20060130, end: 20060710
  3. OCELLA [Suspect]
     Dosage: UNK
     Dates: start: 20090619, end: 20101111
  4. Z-PAK [Concomitant]
  5. IBUPROFEN [Concomitant]
     Dosage: UNK
  6. CITALOPRAM [Concomitant]
     Indication: DEPRESSION
     Dosage: UNK
     Dates: start: 200601, end: 200905
  7. PRISTIQ [Concomitant]
     Indication: DEPRESSION
     Dosage: UNK
     Dates: start: 20100830
  8. PRISTIQ [Concomitant]
     Indication: DEPRESSION
     Dosage: UNK
     Dates: start: 20101011
  9. BACTRIM [Concomitant]
     Indication: INFECTION
     Dosage: UNK
     Dates: start: 20101116
  10. ACIPHEX [Concomitant]
     Dosage: UNK
     Dates: start: 20100817
  11. SULFAMETHOXAZOLE W/TRIMETHOPRIM [Concomitant]
     Dosage: UNK
     Dates: start: 20100907
  12. SULFAMETHOXAZOLE W/TRIMETHOPRIM [Concomitant]
     Dosage: UNK
     Dates: start: 20101116
  13. PROMETHAZINE [Concomitant]
     Dosage: UNK
     Dates: start: 20100924
  14. OXYCODONE/APAP [Concomitant]
     Dosage: UNK
     Dates: start: 20101016, end: 20101223

REACTIONS (9)
  - Deep vein thrombosis [None]
  - Pulmonary embolism [None]
  - Embolic stroke [None]
  - Injury [None]
  - Pain [None]
  - Emotional distress [None]
  - General physical health deterioration [None]
  - Anxiety [None]
  - Pain [None]
